FAERS Safety Report 25220341 (Version 1)
Quarter: 2025Q2

REPORT INFORMATION
  Report Type: Spontaneous
  Country: US (occurrence: US)
  Receive Date: 20250421
  Receipt Date: 20250421
  Transmission Date: 20250716
  Serious: Yes (Other)
  Sender: GALPHARM INTERNATIONAL
  Company Number: US-PERRIGO-25US004639

PATIENT
  Age: 28 Year
  Sex: Female
  Weight: 97.506 kg

DRUGS (2)
  1. POLYETHYLENE GLYCOL 3350 [Suspect]
     Active Substance: POLYETHYLENE GLYCOL 3350
     Indication: Constipation
     Route: 048
     Dates: start: 20250316, end: 20250316
  2. POLYETHYLENE GLYCOL 3350 [Suspect]
     Active Substance: POLYETHYLENE GLYCOL 3350
     Route: 048
     Dates: start: 20250319, end: 20250319

REACTIONS (11)
  - Anaphylactic reaction [Recovered/Resolved]
  - Blood pressure decreased [Recovered/Resolved]
  - Dyspnoea [Recovered/Resolved]
  - Throat tightness [Recovered/Resolved]
  - Myalgia [Recovered/Resolved]
  - Pruritus [Recovered/Resolved]
  - Chills [Recovered/Resolved]
  - Oesophageal spasm [Recovered/Resolved]
  - Paraesthesia oral [Recovered/Resolved]
  - Urticaria [Recovered/Resolved]
  - Hypersensitivity [Recovered/Resolved]

NARRATIVE: CASE EVENT DATE: 20250316
